FAERS Safety Report 8980309 (Version 1)
Quarter: 2012Q4

REPORT INFORMATION
  Report Type: Report from Study
  Country: DE (occurrence: DE)
  Receive Date: 20121221
  Receipt Date: 20121221
  Transmission Date: 20130627
  Serious: Yes (Hospitalization, Other)
  Sender: FDA-Public Use
  Company Number: DE-ASTRAZENECA-2012SE90308

PATIENT
  Age: 22803 Day
  Sex: Male

DRUGS (11)
  1. AZD6140 [Suspect]
     Indication: CORONARY ARTERY DISEASE
     Route: 048
     Dates: start: 20111026, end: 20121119
  2. CORIFEO [Concomitant]
     Indication: HYPERTENSION
     Route: 048
  3. MOXONDIN [Concomitant]
     Indication: HYPERTENSION
     Route: 048
  4. TORASEMID [Concomitant]
     Indication: HYPERTENSION
     Route: 048
  5. METOHEXAL [Concomitant]
     Indication: HYPERTENSION
     Route: 048
  6. RAMIPRIL [Concomitant]
     Indication: HYPERTENSION
     Route: 048
  7. RAMIPRIL PLUS [Concomitant]
     Indication: HYPERTENSION
     Route: 048
     Dates: start: 20120927
  8. NOVO RAPID [Concomitant]
     Indication: TYPE 2 DIABETES MELLITUS
     Route: 058
  9. LANTUS [Concomitant]
     Indication: TYPE 2 DIABETES MELLITUS
     Route: 058
  10. OMEPRAZOL [Concomitant]
     Indication: PROPHYLAXIS
     Route: 048
  11. ASA [Concomitant]
     Route: 048

REACTIONS (1)
  - Dieulafoy^s vascular malformation [Recovered/Resolved]
